FAERS Safety Report 5013172-5 (Version None)
Quarter: 2006Q2

REPORT INFORMATION
  Report Type: 
  Country: None (occurrence: None)
  Receive Date: 20060530
  Receipt Date: 20060314
  Transmission Date: 20061013
  Serious: No
  Sender: FDA-Public Use
  Company Number: US-GLAXOSMITHKLINE-A0597513A

PATIENT
  Age: 66 Year
  Sex: Female
  Weight: 81.8 kg

DRUGS (4)
  1. WELLBUTRIN XL [Suspect]
     Indication: DEPRESSION
     Dosage: 150MG SINGLE DOSE
     Route: 048
     Dates: start: 20060309, end: 20060309
  2. CARNITOR [Concomitant]
  3. OZIDIA [Concomitant]
  4. VITAMINS [Concomitant]

REACTIONS (3)
  - HEADACHE [None]
  - NAUSEA [None]
  - TINNITUS [None]
